APPROVED DRUG PRODUCT: MITIGARE
Active Ingredient: COLCHICINE
Strength: 0.6MG
Dosage Form/Route: CAPSULE;ORAL
Application: N204820 | Product #001 | TE Code: AB
Applicant: HIKMA INTERNATIONAL PHARMACEUTICALS LLC
Approved: Sep 26, 2014 | RLD: Yes | RS: Yes | Type: RX

PATENTS:
Patent 9555029 | Expires: Aug 22, 2033
Patent 9789108 | Expires: Aug 22, 2033
Patent 9675613 | Expires: Aug 22, 2033
Patent 8927607 | Expires: Aug 22, 2033
Patent 9399036 | Expires: Aug 22, 2033